FAERS Safety Report 20810117 (Version 1)
Quarter: 2022Q2

REPORT INFORMATION
  Report Type: Spontaneous
  Country: US (occurrence: US)
  Receive Date: 20220510
  Receipt Date: 20220510
  Transmission Date: 20220721
  Serious: No
  Sender: FDA-Public Use
  Company Number: US-OYSTER POINT PHARMA, INC.-2022OYS00054

PATIENT
  Age: 47 Year
  Sex: Female
  Weight: 94.785 kg

DRUGS (11)
  1. TYRVAYA [Suspect]
     Active Substance: VARENICLINE TARTRATE
     Indication: Dry eye
     Dosage: 1 SPRAY IN EACH NOSTRIL, 2X/DAY
     Route: 045
     Dates: start: 20211215
  2. TYRVAYA [Suspect]
     Active Substance: VARENICLINE TARTRATE
     Dosage: 1 SPRAY IN EACH NOSTRIL, 2X/DAY
     Route: 045
  3. CLARITIN [Concomitant]
     Active Substance: LORATADINE
     Dosage: UNK UNK, 1X/DAY, ALTERNATES WITH ZYRTEC MONTHLY
  4. ZYRTEC [Concomitant]
     Active Substance: CETIRIZINE HYDROCHLORIDE
     Dosage: UNK UNK, 1X/DAY, ALTERNATES WITH CLARITIN MONTHLY
  5. IRBESARTAN [Concomitant]
     Active Substance: IRBESARTAN
  6. FISH OIL [Concomitant]
     Active Substance: FISH OIL
  7. METFORMIN [Concomitant]
     Active Substance: METFORMIN HYDROCHLORIDE
  8. VITAMIN C [Concomitant]
     Active Substance: ASCORBIC ACID
  9. ATORVASTATIN [Concomitant]
     Active Substance: ATORVASTATIN
  10. CINNAMON [Concomitant]
     Active Substance: CINNAMON
  11. VITAMINS [Concomitant]
     Active Substance: VITAMINS

REACTIONS (2)
  - Pruritus [Recovered/Resolved]
  - Product dose omission issue [Recovered/Resolved]

NARRATIVE: CASE EVENT DATE: 20211201
